FAERS Safety Report 26002252 (Version 2)
Quarter: 2025Q4

REPORT INFORMATION
  Report Type: Report from Study
  Country: CO (occurrence: CO)
  Receive Date: 20251105
  Receipt Date: 20251110
  Transmission Date: 20260118
  Serious: Yes (Other)
  Sender: ABBVIE
  Company Number: CO-JNJFOC-20251040203

PATIENT
  Age: 60 Year
  Sex: Female
  Weight: 75 kg

DRUGS (1)
  1. IMBRUVICA [Suspect]
     Active Substance: IBRUTINIB
     Indication: Chronic lymphocytic leukaemia
     Route: 048
     Dates: start: 20240425

REACTIONS (3)
  - Haematoma [Unknown]
  - Drug ineffective [Unknown]
  - Contusion [Unknown]

NARRATIVE: CASE EVENT DATE: 20250912
